FAERS Safety Report 17244426 (Version 2)
Quarter: 2020Q2

REPORT INFORMATION
  Report Type: Spontaneous
  Country: US (occurrence: US)
  Receive Date: 20200107
  Receipt Date: 20200522
  Transmission Date: 20200713
  Serious: Yes (Other)
  Sender: FDA-Public Use
  Company Number: US-GILEAD-2020-0445047

PATIENT
  Sex: Female

DRUGS (1)
  1. ATRIPLA [Suspect]
     Active Substance: EFAVIRENZ\EMTRICITABINE\TENOFOVIR DISOPROXIL FUMARATE
     Indication: HIV INFECTION
     Dosage: UNK
     Route: 048
     Dates: start: 2006, end: 2014

REACTIONS (11)
  - Anhedonia [Unknown]
  - Femur fracture [Unknown]
  - Fracture [Unknown]
  - Renal failure [Unknown]
  - Anxiety [Unknown]
  - Bone density decreased [Unknown]
  - Economic problem [Unknown]
  - Pain [Unknown]
  - Emotional distress [Unknown]
  - Osteoporosis [Unknown]
  - Tooth loss [Unknown]

NARRATIVE: CASE EVENT DATE: 2015
